FAERS Safety Report 8433424-6 (Version None)
Quarter: 2012Q2

REPORT INFORMATION
  Report Type: 
  Country: None (occurrence: None)
  Receive Date: 20120613
  Receipt Date: 20120604
  Transmission Date: 20120825
  Serious: Yes (Hospitalization)
  Sender: FDA-Public Use
  Company Number: US-BRISTOL-MYERS SQUIBB COMPANY-16584419

PATIENT
  Age: 78 Year
  Sex: Female

DRUGS (20)
  1. VITAMIN D [Concomitant]
  2. ACETAMINOPHEN [Concomitant]
  3. TOPROL-XL [Concomitant]
  4. DIOVAN [Concomitant]
  5. LASIX [Concomitant]
  6. BENICAR [Concomitant]
  7. ANCEF [Concomitant]
  8. ZOLOFT [Concomitant]
  9. MONOPRIL [Concomitant]
  10. LORTAB [Concomitant]
  11. YERVOY [Suspect]
     Indication: MALIGNANT MELANOMA
     Dosage: NO OF DOSES : 3 LAST DOSE:15-FEB-2012
     Route: 042
     Dates: start: 20120104, end: 20120101
  12. ATIVAN [Concomitant]
  13. NIFEREX [Concomitant]
  14. PREDNISOLONE [Concomitant]
  15. METOPROLOL TARTRATE [Concomitant]
  16. ONDANSETRON [Concomitant]
  17. LISINOPRIL [Concomitant]
  18. NYSTATIN [Concomitant]
  19. PROTONIX [Concomitant]
  20. ALLEGRA [Concomitant]

REACTIONS (4)
  - NAUSEA [None]
  - LOWER LIMB FRACTURE [None]
  - DIARRHOEA [None]
  - VOMITING [None]
